FAERS Safety Report 17456168 (Version 1)
Quarter: 2020Q1

REPORT INFORMATION
  Report Type: Spontaneous
  Country: JP (occurrence: JP)
  Receive Date: 20200225
  Receipt Date: 20200225
  Transmission Date: 20200409
  Serious: Yes (Hospitalization)
  Sender: FDA-Public Use
  Company Number: NVSJ2020JP002223

PATIENT
  Age: 70 Year
  Sex: Male

DRUGS (21)
  1. LEVODOPA [Concomitant]
     Active Substance: LEVODOPA
     Dosage: 600 MG
     Route: 048
  2. LEVODOPA [Concomitant]
     Active Substance: LEVODOPA
     Dosage: 800 MG
     Route: 048
  3. SELEGILINE HYDROCHLORIDE. [Concomitant]
     Active Substance: SELEGILINE HYDROCHLORIDE
     Indication: PARKINSON^S DISEASE
     Dosage: 2.5 MG
     Route: 048
  4. ROTIGOTINE [Concomitant]
     Active Substance: ROTIGOTINE
     Dosage: 18 MG
     Route: 048
  5. ROTIGOTINE [Concomitant]
     Active Substance: ROTIGOTINE
     Indication: PARKINSON^S DISEASE
     Dosage: 13.5 MG
     Route: 048
  6. ENTACAPONE. [Suspect]
     Active Substance: ENTACAPONE
     Dosage: 200 MG
     Route: 048
  7. QUETIAPINE. [Concomitant]
     Active Substance: QUETIAPINE
     Dosage: 75 MG
     Route: 048
  8. ISTRADEFYLLINE [Concomitant]
     Active Substance: ISTRADEFYLLINE
     Dosage: 40 MG
     Route: 048
  9. ENTACAPONE. [Suspect]
     Active Substance: ENTACAPONE
     Dosage: 400 MG
     Route: 048
  10. QUETIAPINE. [Concomitant]
     Active Substance: QUETIAPINE
     Dosage: 75 MG
     Route: 048
  11. ISTRADEFYLLINE [Concomitant]
     Active Substance: ISTRADEFYLLINE
     Dosage: 20 MG
     Route: 048
  12. QUETIAPINE. [Concomitant]
     Active Substance: QUETIAPINE
     Indication: PRODUCT USED FOR UNKNOWN INDICATION
     Dosage: 50 MG
     Route: 048
  13. ROTIGOTINE [Concomitant]
     Active Substance: ROTIGOTINE
     Dosage: 18 MG
     Route: 048
  14. LEVODOPA [Concomitant]
     Active Substance: LEVODOPA
     Dosage: 800 MG
     Route: 048
  15. ISTRADEFYLLINE [Concomitant]
     Active Substance: ISTRADEFYLLINE
     Indication: PARKINSON^S DISEASE
     Dosage: 20 MG
     Route: 048
  16. ZONISAMIDE. [Concomitant]
     Active Substance: ZONISAMIDE
     Indication: PARKINSON^S DISEASE
     Dosage: 25 MG
     Route: 048
  17. LEVODOPA [Concomitant]
     Active Substance: LEVODOPA
     Dosage: 500 MG
     Route: 048
  18. QUETIAPINE. [Concomitant]
     Active Substance: QUETIAPINE
     Dosage: 75 MG
     Route: 048
  19. ENTACAPONE. [Suspect]
     Active Substance: ENTACAPONE
     Indication: PARKINSON^S DISEASE
     Dosage: 900 MG
     Route: 048
  20. LEVODOPA [Concomitant]
     Active Substance: LEVODOPA
     Indication: PARKINSON^S DISEASE
     Dosage: 1200 MG
     Route: 048
  21. ISTRADEFYLLINE [Concomitant]
     Active Substance: ISTRADEFYLLINE
     Dosage: 40 MG
     Route: 048

REACTIONS (9)
  - Parkinson^s disease [Recovering/Resolving]
  - Dehydration [Recovered/Resolved]
  - Dysphonia [Unknown]
  - Therapeutic response shortened [Unknown]
  - Delusion [Unknown]
  - Cognitive disorder [Unknown]
  - Hallucination [Unknown]
  - Agitation [Unknown]
  - Dysphagia [Recovering/Resolving]
